FAERS Safety Report 10183244 (Version 4)
Quarter: 2014Q3

REPORT INFORMATION
  Report Type: Spontaneous
  Country: US (occurrence: US)
  Receive Date: 20140520
  Receipt Date: 20140807
  Transmission Date: 20150326
  Serious: Yes (Other)
  Sender: FDA-Public Use
  Company Number: US-PFIZER INC-2014136276

PATIENT
  Age: 59 Year
  Sex: Female
  Weight: 132 kg

DRUGS (31)
  1. DIFLUCAN [Concomitant]
     Active Substance: FLUCONAZOLE
     Dosage: 1 TABLET (200 MG TOTAL) DAILY
     Route: 048
  2. ZESTRIL [Concomitant]
     Active Substance: LISINOPRIL
     Dosage: 1 TABLET (20 MG TOTAL), DAILY
     Route: 048
  3. PHENERGAN [Concomitant]
     Active Substance: PROMETHAZINE HYDROCHLORIDE
     Indication: VOMITING
  4. GLUCOPHAGE XR [Concomitant]
     Active Substance: METFORMIN HYDROCHLORIDE
     Dosage: 1000 MG, 2X/DAY
     Route: 048
  5. PROTONIX [Concomitant]
     Active Substance: PANTOPRAZOLE SODIUM
     Dosage: 1 TABLET (40 MG TOTAL) TWO TIMES DAILY
  6. PARAFON FORTE [Concomitant]
     Active Substance: CHLORZOXAZONE
     Indication: MUSCLE SPASMS
     Dosage: 1 TABLET (500 MG TOTAL) 4 TIMES DAILY AS NEEDED
     Route: 048
  7. LEXAPRO [Concomitant]
     Active Substance: ESCITALOPRAM OXALATE
     Dosage: 1 TABLET (20 MG TOTAL), DAILY
     Route: 048
  8. PRINIVIL [Concomitant]
     Active Substance: LISINOPRIL
     Dosage: 1 TABLET (20 MG TOTAL) DAILY
     Route: 048
  9. MYCOLOG II [Concomitant]
     Dosage: 100000-0.1 UNIT/G %
     Route: 061
  10. LISINOPRIL. [Concomitant]
     Active Substance: LISINOPRIL
     Dosage: UNK
  11. LOMOTIL [Concomitant]
     Active Substance: ATROPINE SULFATE\DIPHENOXYLATE HYDROCHLORIDE
     Indication: DIARRHOEA
     Dosage: 2.5-0.025 MG, 1 TABLET 4 TIMES DAILY AS NEEDED
     Route: 048
  12. LYRICA [Suspect]
     Active Substance: PREGABALIN
     Indication: FIBROMYALGIA
     Dosage: 200 MG, 2X/DAY
     Route: 048
  13. METFORMIN [Concomitant]
     Active Substance: METFORMIN HYDROCHLORIDE
     Dosage: UNK
  14. OXYCONTIN [Concomitant]
     Active Substance: OXYCODONE HYDROCHLORIDE
     Dosage: 1 TABLET (20 MG TOTAL) TWO TIMES DAILY AS NEEDED
  15. SOMA [Concomitant]
     Active Substance: CARISOPRODOL
     Dosage: UNK
  16. KENALOG [Concomitant]
     Active Substance: TRIAMCINOLONE ACETONIDE
     Dosage: 0.1 %, TWO TIMES DAILY
     Route: 061
  17. GLYCOLAX [Concomitant]
     Active Substance: POLYETHYLENE GLYCOL 3350
     Dosage: 1 PACKET (17 G TOTAL) DAILY
     Route: 048
  18. OXYCODONE [Concomitant]
     Active Substance: OXYCODONE
     Dosage: 5 MG, EVERY SIX (6) HOURS AS NEEDED
     Route: 048
  19. VITAMIN D3 [Concomitant]
     Active Substance: CHOLECALCIFEROL
     Dosage: UNK
  20. OXYBUTYNIN [Concomitant]
     Active Substance: OXYBUTYNIN
     Dosage: UNK
  21. ABILIFY [Concomitant]
     Active Substance: ARIPIPRAZOLE
     Dosage: 1 TABLET (5 MG TOTAL) DAILY
     Route: 048
  22. XANAX [Concomitant]
     Active Substance: ALPRAZOLAM
     Dosage: 1 TABLET (1 MG TOTAL) TWO TIMES DAILY AS NEEDED
     Route: 048
  23. PERCOCET [Concomitant]
     Active Substance: ACETAMINOPHEN\OXYCODONE HYDROCHLORIDE
     Indication: PAIN
     Dosage: 10-325 MG, 1-2 TABS Q4H PRN
     Route: 048
  24. LYRICA [Suspect]
     Active Substance: PREGABALIN
     Indication: NEUROPATHY PERIPHERAL
  25. XYZAL [Concomitant]
     Active Substance: LEVOCETIRIZINE DIHYDROCHLORIDE
     Indication: HYPERSENSITIVITY
     Dosage: 5 MG, 1 TABLET (5 MG TOTAL) EVERY EVENING
     Route: 048
  26. CARISOPRODOL. [Concomitant]
     Active Substance: CARISOPRODOL
     Indication: MUSCLE SPASMS
     Dosage: 1 TABLET (350 MG TOTAL) TWO TIMES DAILY AS NEEDED
     Route: 048
  27. DITROPAN [Concomitant]
     Active Substance: OXYBUTYNIN CHLORIDE
     Dosage: 1 TABLET (5 MG TOTAL) THREE TIMES DAILY
     Route: 048
  28. ZETIA [Concomitant]
     Active Substance: EZETIMIBE
     Indication: BLOOD CHOLESTEROL INCREASED
     Dosage: 1 TABLET (10 MG TOTAL), DAILY
  29. FLOMAX [Concomitant]
     Active Substance: TAMSULOSIN HYDROCHLORIDE
     Dosage: 1 CAPSULE (0.4 MG TOTAL) AT BEDTIME
     Route: 048
  30. PHENERGAN [Concomitant]
     Active Substance: PROMETHAZINE HYDROCHLORIDE
     Indication: NAUSEA
     Dosage: 1 SUPPOSITORY (50 MG TOTAL) RECTALLY EVERY SIX (6) HOURS AS NEEDED
     Route: 054
  31. NYSTATIN. [Concomitant]
     Active Substance: NYSTATIN
     Dosage: 100000 UNIT/G, FOUR TIMES DAILY
     Route: 061

REACTIONS (4)
  - Irritable bowel syndrome [Unknown]
  - Diabetes mellitus [Unknown]
  - Medication residue present [Recovered/Resolved]
  - Intervertebral disc degeneration [Unknown]

NARRATIVE: CASE EVENT DATE: 20140515
